FAERS Safety Report 15516877 (Version 2)
Quarter: 2019Q1

REPORT INFORMATION
  Report Type: Spontaneous
  Country: US (occurrence: US)
  Receive Date: 20181017
  Receipt Date: 20190125
  Transmission Date: 20190417
  Serious: No
  Sender: FDA-Public Use
  Company Number: US-GLAXOSMITHKLINE-US2018GSK183091

PATIENT
  Age: 11 Year
  Sex: Male
  Weight: 71 kg

DRUGS (3)
  1. ALBUTEROL NEBULISER SOLUTION [Suspect]
     Active Substance: ALBUTEROL SULFATE
     Indication: WHEEZING
     Dosage: 5 MG, UNK
  2. NUCALA [Suspect]
     Active Substance: MEPOLIZUMAB
     Indication: PRODUCT USED FOR UNKNOWN INDICATION
     Dosage: 100MG
     Route: 058
     Dates: start: 20181004, end: 20181004
  3. AMOXICILLIN. [Suspect]
     Active Substance: AMOXICILLIN
     Indication: PRODUCT USED FOR UNKNOWN INDICATION
     Dosage: UNK

REACTIONS (17)
  - Asthma [Unknown]
  - Eructation [Unknown]
  - Throat irritation [Recovered/Resolved]
  - Rash [Unknown]
  - Dermatitis atopic [Unknown]
  - Rhinitis allergic [Unknown]
  - Drug ineffective [Unknown]
  - Drug hypersensitivity [Unknown]
  - Gastrooesophageal reflux disease [Unknown]
  - Constipation [Unknown]
  - Chronic respiratory disease [Unknown]
  - Abdominal pain [Unknown]
  - Wheezing [Unknown]
  - Adverse reaction [Unknown]
  - Dysphagia [Unknown]
  - Cough [Unknown]
  - Product administered to patient of inappropriate age [Unknown]

NARRATIVE: CASE EVENT DATE: 20181004
